FAERS Safety Report 7943209-2 (Version None)
Quarter: 2011Q4

REPORT INFORMATION
  Report Type: 
  Country: None (occurrence: None)
  Receive Date: 20111128
  Receipt Date: 20111017
  Transmission Date: 20120403
  Serious: Yes (Death)
  Sender: FDA-Public Use
  Company Number: PHHY2011BR101380

PATIENT
  Age: 33 Year
  Sex: Female

DRUGS (1)
  1. TEGRETOL [Suspect]

REACTIONS (4)
  - BONE MARROW FAILURE [None]
  - RENAL FAILURE [None]
  - BLOOD DISORDER [None]
  - STEVENS-JOHNSON SYNDROME [None]
